FAERS Safety Report 6668400-7 (Version None)
Quarter: 2010Q3

REPORT INFORMATION
  Report Type: 
  Country: None (occurrence: None)
  Receive Date: 20100406
  Receipt Date: 20100324
  Transmission Date: 20110219
  Serious: Yes (Other)
  Sender: FDA-Public Use
  Company Number: PHHY2010BR19211

PATIENT
  Sex: Female

DRUGS (2)
  1. AMLODIPINE BESYLATE AND VALSARTAN [Suspect]
     Dosage: 80/5 MG, (2 TABLETS,DAILY)
  2. EXFORGE [Suspect]
     Dosage: 80/5 MG (1 TABLET, DAILY)

REACTIONS (6)
  - BLOOD PRESSURE FLUCTUATION [None]
  - CONFUSIONAL STATE [None]
  - DRUG DISPENSING ERROR [None]
  - LIMB INJURY [None]
  - MALAISE [None]
  - WRONG TECHNIQUE IN DRUG USAGE PROCESS [None]
